FAERS Safety Report 6980518-8 (Version None)
Quarter: 2010Q3

REPORT INFORMATION
  Report Type: 
  Country: None (occurrence: None)
  Receive Date: 20100914
  Receipt Date: 20100901
  Transmission Date: 20110219
  Serious: Yes (Hospitalization)
  Sender: FDA-Public Use
  Company Number: PHHY2010US56623

PATIENT
  Sex: Female
  Weight: 68 kg

DRUGS (4)
  1. EXJADE [Suspect]
     Indication: SICKLE CELL ANAEMIA WITH CRISIS
     Dosage: 2000 MG, QD
     Route: 048
     Dates: start: 20090921
  2. PERCOCET [Concomitant]
     Indication: PAIN
     Dosage: Q4-6 PM
     Route: 048
  3. PHENERGAN [Concomitant]
     Indication: PAIN
     Dosage: Q6-8 PM
     Route: 048
  4. FOLIC ACID [Concomitant]
     Indication: SICKLE CELL ANAEMIA
     Dosage: DAILY
     Route: 048

REACTIONS (1)
  - PAIN [None]
